FAERS Safety Report 10268352 (Version 1)
Quarter: 2014Q2

REPORT INFORMATION
  Report Type: Report from Study
  Country: ES (occurrence: ES)
  Receive Date: 20140630
  Receipt Date: 20140630
  Transmission Date: 20141212
  Serious: Yes (Life-Threatening, Hospitalization)
  Sender: FDA-Public Use
  Company Number: ES-ABBVIE-14K-144-1253356-00

PATIENT
  Age: 57 Year
  Sex: Female

DRUGS (6)
  1. DEPAKINE CHRONO [Suspect]
     Indication: SUICIDE ATTEMPT
     Route: 048
     Dates: start: 20140331, end: 20140331
  2. RISPERIDONE [Suspect]
     Indication: SUICIDE ATTEMPT
     Route: 048
     Dates: start: 20140331, end: 20140331
  3. MIRTAZAPINE [Suspect]
     Indication: SUICIDE ATTEMPT
     Route: 048
     Dates: start: 20140331, end: 20140331
  4. QUETIAPINE [Suspect]
     Indication: SUICIDE ATTEMPT
     Route: 048
     Dates: start: 20140331, end: 20140331
  5. BIPERIDEN [Suspect]
     Indication: SUICIDE ATTEMPT
     Route: 048
     Dates: start: 20140331, end: 20140331
  6. SERTRALINE HYDROCHLORIDE [Suspect]
     Indication: SUICIDE ATTEMPT
     Route: 048
     Dates: start: 20140331, end: 20140331

REACTIONS (3)
  - Depressed level of consciousness [Recovered/Resolved]
  - Leukopenia [Recovered/Resolved]
  - Thrombocytopenia [Recovered/Resolved]
